FAERS Safety Report 25634257 (Version 1)
Quarter: 2025Q3

REPORT INFORMATION
  Report Type: Spontaneous
  Country: EU (occurrence: EU)
  Receive Date: 20250801
  Receipt Date: 20250801
  Transmission Date: 20251021
  Serious: Yes (Other)
  Sender: ELI LILLY AND COMPANY
  Company Number: EU-ELI_LILLY_AND_COMPANY-BE202507020958

PATIENT
  Sex: Female
  Weight: 71 kg

DRUGS (2)
  1. MOUNJARO [Suspect]
     Active Substance: TIRZEPATIDE
     Indication: Product used for unknown indication
     Dosage: 2.5 MG, WEEKLY (1/W)
     Route: 065
     Dates: start: 20241021, end: 20250120
  2. MOUNJARO [Suspect]
     Active Substance: TIRZEPATIDE
     Indication: Product used for unknown indication
     Dosage: 10 MG, WEEKLY (1/W)
     Route: 065

REACTIONS (14)
  - Nephrolithiasis [Unknown]
  - White blood cells urine positive [Unknown]
  - Hepatic enzyme decreased [Unknown]
  - Back pain [Unknown]
  - Poor quality sleep [Unknown]
  - Headache [Unknown]
  - Hot flush [Unknown]
  - Skin odour abnormal [Unknown]
  - Pancreatic enzymes decreased [Unknown]
  - Blood cholesterol increased [Unknown]
  - Abdominal distension [Not Recovered/Not Resolved]
  - Nausea [Unknown]
  - Constipation [Unknown]
  - Off label use [Unknown]

NARRATIVE: CASE EVENT DATE: 20250303
